FAERS Safety Report 17228088 (Version 1)
Quarter: 2020Q1

REPORT INFORMATION
  Report Type: Spontaneous
  Country: FR (occurrence: FR)
  Receive Date: 20200103
  Receipt Date: 20200103
  Transmission Date: 20200409
  Serious: Yes (Hospitalization)
  Sender: FDA-Public Use
  Company Number: FR-TEVA-2019-FR-1160842

PATIENT
  Age: 72 Year
  Sex: Female

DRUGS (3)
  1. VANCOMYCINE [Suspect]
     Active Substance: VANCOMYCIN
     Indication: SUPERINFECTION
     Dosage: 1 GRAM
     Route: 042
     Dates: start: 20191117, end: 20191118
  2. TAZOCILLINE [Suspect]
     Active Substance: PIPERACILLIN SODIUM\TAZOBACTAM SODIUM
     Indication: SUPERINFECTION BACTERIAL
     Dosage: 12 GRAM
     Route: 042
     Dates: start: 20191118, end: 20191119
  3. CEFAZOLINE MYLAN [Suspect]
     Active Substance: CEFAZOLIN SODIUM
     Indication: SUPERINFECTION BACTERIAL
     Dosage: 6 GRAM
     Route: 042
     Dates: start: 20191119, end: 20191126

REACTIONS (2)
  - Acute kidney injury [Not Recovered/Not Resolved]
  - Vascular purpura [Not Recovered/Not Resolved]

NARRATIVE: CASE EVENT DATE: 20191124
